FAERS Safety Report 12939476 (Version 2)
Quarter: 2016Q4

REPORT INFORMATION
  Report Type: Spontaneous
  Country: JP (occurrence: JP)
  Receive Date: 20161115
  Receipt Date: 20161118
  Transmission Date: 20170207
  Serious: Yes (Death, Other)
  Sender: FDA-Public Use
  Company Number: JP-PFIZER INC-2016527283

PATIENT
  Age: 61 Year
  Sex: Male
  Weight: 63 kg

DRUGS (7)
  1. CAMPTO [Suspect]
     Active Substance: IRINOTECAN
     Indication: PANCREATIC CARCINOMA
     Dosage: 260 MG, ONCE A DAY
     Route: 041
     Dates: start: 20140731, end: 20140731
  2. ELPLAT [Suspect]
     Active Substance: OXALIPLATIN
     Dosage: 110 MG, 1X/DAY
     Route: 041
     Dates: start: 20140821, end: 20140821
  3. ELPLAT [Suspect]
     Active Substance: OXALIPLATIN
     Indication: PANCREATIC CARCINOMA
     Dosage: 140 MG, 1X/DAY
     Route: 041
     Dates: start: 20140731, end: 20140731
  4. LEVOFOLINATE [Suspect]
     Active Substance: LEVOLEUCOVORIN CALCIUM
     Indication: PANCREATIC CARCINOMA
     Dosage: 350 MG, ONCE A DAY
     Route: 041
     Dates: start: 20140731, end: 20140731
  5. CAMPTO [Suspect]
     Active Substance: IRINOTECAN
     Dosage: 260 MG, ONCE A DAY
     Route: 041
     Dates: start: 20140821, end: 20140821
  6. 5-FU [Concomitant]
     Active Substance: FLUOROURACIL
     Dosage: 4200 MG/BODY/D1-2
     Route: 041
     Dates: start: 20140731, end: 20140821
  7. LEVOFOLINATE [Suspect]
     Active Substance: LEVOLEUCOVORIN CALCIUM
     Dosage: 350 MG, ONCE A DAY
     Route: 041
     Dates: start: 20140821, end: 20140821

REACTIONS (9)
  - Neoplasm progression [Fatal]
  - Neutrophil count decreased [Recovering/Resolving]
  - Diarrhoea [Recovered/Resolved]
  - Decreased appetite [Not Recovered/Not Resolved]
  - Peripheral sensory neuropathy [Not Recovered/Not Resolved]
  - Haemoglobin decreased [Recovering/Resolving]
  - Fatigue [Not Recovered/Not Resolved]
  - White blood cell count decreased [Recovering/Resolving]
  - Nausea [Not Recovered/Not Resolved]

NARRATIVE: CASE EVENT DATE: 20140810
